FAERS Safety Report 4745526-6 (Version None)
Quarter: 2005Q3

REPORT INFORMATION
  Report Type: 
  Country: None (occurrence: None)
  Receive Date: 20050812
  Receipt Date: 20020419
  Transmission Date: 20060218
  Serious: Yes (Hospitalization)
  Sender: FDA-Public Use
  Company Number: 02-NIP00070

PATIENT
  Age: 22 Year
  Sex: Male

DRUGS (10)
  1. NIPENT [Suspect]
     Indication: PROPHYLAXIS AGAINST TRANSPLANT REJECTION
     Dosage: -- (0.5 MG/M2), INTRAVENOUS
     Route: 042
  2. TACROLIMUS [Concomitant]
  3. INFLIXIMAB [Concomitant]
  4. IMMUNE GLOBULIN INTRAVENOUS (HUMAN) [Concomitant]
  5. ZENAPAX [Concomitant]
  6. AMPHOTERICIN B [Concomitant]
  7. AMBISOME [Concomitant]
  8. TEQUIN [Concomitant]
  9. PHOTOPHERESIS [Concomitant]
  10. OCTREOTIDE ACETATE [Concomitant]

REACTIONS (2)
  - CYSTITIS HAEMORRHAGIC [None]
  - HAEMATURIA [None]
